FAERS Safety Report 11212434 (Version 1)
Quarter: 2015Q2

REPORT INFORMATION
  Report Type: Report from Study
  Country: FR (occurrence: FR)
  Receive Date: 20150623
  Receipt Date: 20150623
  Transmission Date: 20150821
  Serious: Yes (Hospitalization)
  Sender: FDA-Public Use
  Company Number: FR-GLAXOSMITHKLINE-FR2015GSK087895

PATIENT
  Sex: Male

DRUGS (6)
  1. ASPEGIC [Concomitant]
     Active Substance: ASPIRIN DL-LYSINE
  2. TAHOR [Concomitant]
     Active Substance: ATORVASTATIN CALCIUM
  3. TENORMIN [Concomitant]
     Active Substance: ATENOLOL
  4. TRIATEC [Concomitant]
     Active Substance: RAMIPRIL
  5. OMEGA-3-ACID ETHYL ESTERS. [Suspect]
     Active Substance: OMEGA-3-ACID ETHYL ESTERS
     Indication: ISCHAEMIC HEART DISEASE PROPHYLAXIS
     Dosage: UNK
     Dates: start: 20060711
  6. PLAVIX [Concomitant]
     Active Substance: CLOPIDOGREL BISULFATE

REACTIONS (1)
  - Intervertebral disc protrusion [Unknown]

NARRATIVE: CASE EVENT DATE: 20080611
